FAERS Safety Report 14164963 (Version 5)
Quarter: 2018Q2

REPORT INFORMATION
  Report Type: Spontaneous
  Country: JO (occurrence: JO)
  Receive Date: 20171107
  Receipt Date: 20180422
  Transmission Date: 20180711
  Serious: Yes (Hospitalization, Other)
  Sender: FDA-Public Use
  Company Number: JO-APOPHARMA-2017AP020457

PATIENT
  Age: 8 Year
  Sex: Male
  Weight: 52 kg

DRUGS (2)
  1. FERRIPROX [Suspect]
     Active Substance: DEFERIPRONE
     Indication: THALASSAEMIA
     Dosage: 75 MG/KG, QD
     Route: 048
     Dates: start: 201707, end: 201709
  2. FOLIC ACID. [Concomitant]
     Active Substance: FOLIC ACID
     Indication: PRODUCT USED FOR UNKNOWN INDICATION
     Dosage: UNK, UNKNOWN
     Route: 065

REACTIONS (2)
  - Neutropenia [Recovered/Resolved with Sequelae]
  - Tonsillitis [Recovered/Resolved]

NARRATIVE: CASE EVENT DATE: 20170815
